FAERS Safety Report 6044282-1 (Version None)
Quarter: 2009Q1

REPORT INFORMATION
  Report Type: 
  Country: None (occurrence: None)
  Receive Date: 20090115
  Receipt Date: 20090115
  Transmission Date: 20090719
  Serious: No
  Sender: FDA-Public Use
  Company Number: None

PATIENT
  Sex: Male

DRUGS (9)
  1. AREDIA [Suspect]
     Indication: MULTIPLE MYELOMA
     Dosage: 90 MG MONTHLY IV
     Route: 042
     Dates: start: 20010601, end: 20021201
  2. ZOMETA [Suspect]
     Indication: MULTIPLE MYELOMA
     Dosage: 4 MG MONTHLY IV
     Route: 042
     Dates: start: 20030101, end: 20040201
  3. STEM CELL TRANSPLANT [Concomitant]
  4. THALIDOMIDE [Concomitant]
  5. DECADRON [Concomitant]
  6. INTERFERON ALFA [Concomitant]
  7. PROCRIT [Concomitant]
  8. CELEXA [Concomitant]
  9. ACYCLOVIR [Concomitant]

REACTIONS (1)
  - OSTEONECROSIS [None]
